FAERS Safety Report 4968592-1 (Version None)
Quarter: 2006Q2

REPORT INFORMATION
  Report Type: 
  Country: None (occurrence: None)
  Receive Date: 20060405
  Receipt Date: 20060322
  Transmission Date: 20061013
  Serious: Yes (Hospitalization)
  Sender: FDA-Public Use
  Company Number: 2006-0009356

PATIENT
  Sex: Male

DRUGS (4)
  1. EMTRIVA [Suspect]
     Indication: HIV INFECTION
  2. VIREAD [Suspect]
     Indication: HIV INFECTION
  3. SUSTIVA [Suspect]
     Indication: HIV INFECTION
  4. BACTRIM [Concomitant]

REACTIONS (4)
  - HAEMORRHAGE [None]
  - MALLORY-WEISS SYNDROME [None]
  - SHOCK [None]
  - THROMBOCYTOPENIA [None]
